FAERS Safety Report 6774253-9 (Version None)
Quarter: 2010Q2

REPORT INFORMATION
  Report Type: 
  Country: None (occurrence: None)
  Receive Date: 20100617
  Receipt Date: 20100616
  Transmission Date: 20101027
  Serious: Yes (Hospitalization)
  Sender: FDA-Public Use
  Company Number: JP-ROXANE LABORATORIES, INC.-2010-DE-03291GD

PATIENT
  Age: 55 Year
  Sex: Male

DRUGS (8)
  1. ORAMORPH SR [Suspect]
     Indication: PAIN IN EXTREMITY
     Dosage: 1800 MG
     Route: 048
  2. ORAMORPH SR [Suspect]
     Indication: MUSCULOSKELETAL PAIN
  3. CARBAMAZEPINE [Suspect]
     Indication: PAIN IN EXTREMITY
     Dosage: 200 MG
  4. CARBAMAZEPINE [Suspect]
     Indication: MUSCULOSKELETAL PAIN
  5. DICLOFENAC SODIUM [Suspect]
     Indication: MUSCULOSKELETAL PAIN
     Dosage: 200 MG
     Route: 054
  6. DICLOFENAC SODIUM [Suspect]
     Indication: PAIN IN EXTREMITY
  7. DEXAMETHASONE [Suspect]
     Indication: PAIN IN EXTREMITY
     Dosage: 4 MG
  8. DEXAMETHASONE [Suspect]
     Indication: MUSCULOSKELETAL PAIN

REACTIONS (2)
  - DRUG INEFFECTIVE [None]
  - MYOCLONUS [None]
